FAERS Safety Report 8434877-X (Version None)
Quarter: 2012Q2

REPORT INFORMATION
  Report Type: 
  Country: None (occurrence: None)
  Receive Date: 20120608
  Receipt Date: 20120524
  Transmission Date: 20120825
  Serious: Yes (Other)
  Sender: FDA-Public Use
  Company Number: FK201102971

PATIENT
  Age: 50 Year
  Sex: Female

DRUGS (5)
  1. CELOCURINE (SUXAMETHONIUM CHLORIDE) (SUXAMETHONIUM CHLORIDE) [Suspect]
  2. STRUCTUM (KETOTIFEN FUMARATE) [Concomitant]
  3. SUFENTANIL(SUFENTANIL)(SUFENTANIL [Suspect]
  4. PROPOFOL [Suspect]
     Indication: GENERAL ANAESTHESIA
     Dosage: INTRAVENOUS (NOT OTHERWISE SPECIFIED)
     Route: 042
     Dates: start: 20111116, end: 20111116
  5. ROSUVASTATIN [Concomitant]

REACTIONS (1)
  - ANAPHYLACTIC SHOCK [None]
